FAERS Safety Report 13587288 (Version 6)
Quarter: 2018Q2

REPORT INFORMATION
  Report Type: Report from Study
  Country: US (occurrence: US)
  Receive Date: 20170526
  Receipt Date: 20180420
  Transmission Date: 20180711
  Serious: Yes (Other)
  Sender: FDA-Public Use
  Company Number: US-ALEXION PHARMACEUTICALS INC.-A201705635

PATIENT
  Sex: Male

DRUGS (5)
  1. SOLIRIS [Suspect]
     Active Substance: ECULIZUMAB
     Dosage: 1200 MG, UNK
     Route: 065
  2. PENICILLIN                         /00000901/ [Suspect]
     Active Substance: PENICILLIN G
     Indication: PROPHYLAXIS
     Route: 065
  3. PREDNISONE. [Concomitant]
     Active Substance: PREDNISONE
     Indication: PRODUCT USED FOR UNKNOWN INDICATION
     Dosage: UNK
     Route: 065
  4. SOLIRIS [Suspect]
     Active Substance: ECULIZUMAB
     Indication: PAROXYSMAL NOCTURNAL HAEMOGLOBINURIA
     Dosage: UNK
     Route: 065
  5. SOLIRIS [Suspect]
     Active Substance: ECULIZUMAB
     Dosage: 900 MG, Q2W
     Route: 042

REACTIONS (18)
  - Abdominal pain [Unknown]
  - Feeling hot [Unknown]
  - Fatigue [Unknown]
  - Blood testosterone decreased [Unknown]
  - Stress [Unknown]
  - Influenza like illness [Unknown]
  - Feeling abnormal [Unknown]
  - Dysphagia [Unknown]
  - Loss of personal independence in daily activities [Unknown]
  - Flushing [Unknown]
  - Haemoglobin decreased [Recovering/Resolving]
  - Chest pain [Unknown]
  - Haemolysis [Unknown]
  - Drug effect decreased [Unknown]
  - Poor quality sleep [Unknown]
  - Malaise [Unknown]
  - Abdominal discomfort [Unknown]
  - Incorrect dose administered [Unknown]

NARRATIVE: CASE EVENT DATE: 2014
